FAERS Safety Report 7411430-8 (Version None)
Quarter: 2011Q2

REPORT INFORMATION
  Report Type: 
  Country: None (occurrence: None)
  Receive Date: 20110413
  Receipt Date: 20100805
  Transmission Date: 20111010
  Serious: No
  Sender: FDA-Public Use
  Company Number: US-BRISTOL-MYERS SQUIBB COMPANY-15227663

PATIENT
  Sex: Male

DRUGS (3)
  1. CAMPTOSAR [Concomitant]
  2. ERBITUX [Suspect]
  3. FLUOROURACIL [Concomitant]

REACTIONS (1)
  - RASH [None]
